FAERS Safety Report 24630041 (Version 1)
Quarter: 2024Q4

REPORT INFORMATION
  Report Type: Spontaneous
  Country: US (occurrence: US)
  Receive Date: 20241118
  Receipt Date: 20241118
  Transmission Date: 20250115
  Serious: No
  Sender: GRIFOLS
  Company Number: US-IGSA-BIG0028910

PATIENT
  Age: 57 Year
  Sex: Female

DRUGS (8)
  1. XEMBIFY [Suspect]
     Active Substance: HUMAN IMMUNOGLOBULIN G
     Indication: Immunodeficiency common variable
     Dosage: 4 GRAM, TOTAL
     Route: 058
     Dates: start: 20240501, end: 20240501
  2. XEMBIFY [Suspect]
     Active Substance: HUMAN IMMUNOGLOBULIN G
     Dosage: 4 GRAM, B.I.WK.
     Route: 058
     Dates: start: 202206
  3. BUPRENORPHINE [Concomitant]
     Active Substance: BUPRENORPHINE
  4. DULOXETINE HYDROCHLORIDE [Concomitant]
     Active Substance: DULOXETINE HYDROCHLORIDE
     Dosage: 60 MILLIGRAM
  5. ESOMEPRAZOLE [Concomitant]
     Active Substance: ESOMEPRAZOLE
     Dosage: 40 MILLIGRAM
  6. GABAPENTIN [Concomitant]
     Active Substance: GABAPENTIN
     Dosage: 600 MILLIGRAM
  7. LEVOTHYROXINE [Concomitant]
     Active Substance: LEVOTHYROXINE
     Dosage: 88 MICROGRAM
  8. PROLIA [Concomitant]
     Active Substance: DENOSUMAB

REACTIONS (3)
  - Infusion site pruritus [Unknown]
  - Infusion site erythema [Unknown]
  - Incorrect drug administration rate [Unknown]

NARRATIVE: CASE EVENT DATE: 20240501
